FAERS Safety Report 6993353-1 (Version None)
Quarter: 2010Q3

REPORT INFORMATION
  Report Type: 
  Country: None (occurrence: None)
  Receive Date: 20100917
  Receipt Date: 20100203
  Transmission Date: 20110219
  Serious: No
  Sender: FDA-Public Use
  Company Number: US-ASTRAZENECA-2009UW20566

PATIENT
  Age: 50 Year
  Sex: Female
  Weight: 101.2 kg

DRUGS (15)
  1. SEROQUEL [Suspect]
     Indication: BIPOLAR DISORDER
     Route: 048
     Dates: start: 20050301, end: 20080825
  2. SEROQUEL [Suspect]
     Indication: SCHIZOPHRENIA
     Route: 048
     Dates: start: 20050301, end: 20080825
  3. MARTAZIPINE [Concomitant]
     Indication: SCHIZOPHRENIA
  4. MARTAZIPINE [Concomitant]
     Indication: BIPOLAR DISORDER
  5. MARTAZIPINE [Concomitant]
     Indication: DEPRESSION
  6. GEODON [Concomitant]
     Indication: SCHIZOPHRENIA
     Dates: start: 20090201
  7. GEODON [Concomitant]
     Indication: BIPOLAR DISORDER
     Dates: start: 20090201
  8. GEODON [Concomitant]
     Indication: DEPRESSION
     Dates: start: 20090201
  9. GEODON [Concomitant]
     Dates: start: 20090201
  10. GEODON [Concomitant]
     Dates: start: 20090201
  11. GEODON [Concomitant]
     Dates: start: 20090201
  12. ABILIFY [Concomitant]
     Dates: start: 20050101, end: 20080101
  13. RISPERDAL [Concomitant]
     Dates: start: 20060101
  14. ZYPREXA [Concomitant]
     Dates: start: 19960101, end: 20050101
  15. BUSPAR [Concomitant]

REACTIONS (8)
  - ARTHROPATHY [None]
  - BLOOD CHOLESTEROL INCREASED [None]
  - BLOOD GLUCOSE INCREASED [None]
  - BLOOD TRIGLYCERIDES INCREASED [None]
  - HYPERLIPIDAEMIA [None]
  - OBESITY [None]
  - TYPE 2 DIABETES MELLITUS [None]
  - WEIGHT INCREASED [None]
